FAERS Safety Report 8308169-3 (Version None)
Quarter: 2012Q2

REPORT INFORMATION
  Report Type: 
  Country: None (occurrence: None)
  Receive Date: 20120424
  Receipt Date: 20120417
  Transmission Date: 20120825
  Serious: Yes (Other)
  Sender: FDA-Public Use
  Company Number: US-BAYER-2012-038521

PATIENT
  Age: 27 Year
  Sex: Female

DRUGS (7)
  1. PREDNISONE TAB [Concomitant]
     Dosage: 10 MG, UNK
  2. PREDNISONE TAB [Concomitant]
     Dosage: 50 MG, DAILY
  3. FLEXERIL [Concomitant]
     Indication: BACK PAIN
     Dosage: 10 MG, DAILY
  4. PREDNISONE TAB [Concomitant]
     Indication: BACK PAIN
     Dosage: 30 MG, DAILY
  5. TYLENOL W/ CODEINE NO. 3 [Concomitant]
     Dosage: ONE DAILY
  6. OXYCODONE HCL [Concomitant]
     Indication: BACK PAIN
     Dosage: 5 MG, FOUR TIMES DAILY AS NEEDED
  7. YASMIN [Suspect]

REACTIONS (1)
  - DEEP VEIN THROMBOSIS [None]
